FAERS Safety Report 21385094 (Version 3)
Quarter: 2022Q4

REPORT INFORMATION
  Report Type: Spontaneous
  Country: US (occurrence: US)
  Receive Date: 20220928
  Receipt Date: 20221107
  Transmission Date: 20230112
  Serious: No
  Sender: FDA-Public Use
  Company Number: US-PFIZER INC-202201139520

PATIENT
  Age: 79 Year
  Sex: Female

DRUGS (2)
  1. SOMAVERT [Suspect]
     Active Substance: PEGVISOMANT
     Indication: Brain neoplasm
     Dosage: UNK, 2X/WEEK
     Dates: start: 2022
  2. PASIREOTIDE [Concomitant]
     Active Substance: PASIREOTIDE
     Indication: Pituitary tumour
     Dosage: ONCE MONTHLY INJECTION

REACTIONS (3)
  - Off label use [Unknown]
  - Syringe issue [Unknown]
  - Needle issue [Unknown]

NARRATIVE: CASE EVENT DATE: 20220101
